FAERS Safety Report 9422322 (Version 3)
Quarter: 2014Q2

REPORT INFORMATION
  Report Type: Report from Study
  Country: US (occurrence: US)
  Receive Date: 20130726
  Receipt Date: 20140513
  Transmission Date: 20141212
  Serious: Yes (Other)
  Sender: FDA-Public Use
  Company Number: US-009507513-1307USA011410

PATIENT
  Age: 49 Year
  Sex: Female
  Weight: 58 kg

DRUGS (4)
  1. TEMODAR [Suspect]
     Dosage: 200 MG, QD
     Route: 048
     Dates: start: 20130503, end: 20130530
  2. MACITENTAN [Suspect]
     Indication: GLIOBLASTOMA MULTIFORME
     Dosage: 120 MG, QD
     Route: 048
     Dates: start: 20121001
  3. LEVETIRACETAM [Concomitant]
     Dosage: UNK
     Dates: start: 2012
  4. PANTOPRAZOLE [Concomitant]
     Dosage: UNK
     Dates: start: 2012

REACTIONS (2)
  - Lymphocyte count decreased [Recovered/Resolved]
  - Neutrophil count decreased [Recovered/Resolved]
